FAERS Safety Report 8611005-9 (Version None)
Quarter: 2012Q3

REPORT INFORMATION
  Report Type: 
  Country: None (occurrence: None)
  Receive Date: 20120822
  Receipt Date: 20120820
  Transmission Date: 20120928
  Serious: Yes (Hospitalization, Other)
  Sender: FDA-Public Use
  Company Number: US-JNJFOC-20120402866

PATIENT

DRUGS (12)
  1. DEXAMETHASONE [Suspect]
     Indication: ACUTE LYMPHOCYTIC LEUKAEMIA
     Dosage: 10 MG/M2/DAY DIVIDED IN TO 2 DOSES FOR 14 CONSECUTIVE DAYS
     Route: 048
  2. CYTARABINE [Suspect]
     Indication: ACUTE LYMPHOCYTIC LEUKAEMIA
     Dosage: ON DAY 1 FOR ALL PATIENTS AND ON DAYS 8, 15, 22 FOR CNS INVLOVMENT
     Route: 037
  3. METHOTREXATE SODIUM [Suspect]
     Indication: ACUTE LYMPHOCYTIC LEUKAEMIA
     Dosage: 1 DOSE ON DAY 15 FOR NO CNS INVOLVEMENT AND ON DAYS 8, 15, 22 FOR CNS INVOLVEMENT
     Route: 037
  4. HYDROCORTISONE [Suspect]
     Indication: ACUTE LYMPHOCYTIC LEUKAEMIA
     Dosage: ON DAYS 8, 15 AND 22
     Route: 037
  5. DOXORUBICIN HCL [Suspect]
     Indication: ACUTE LYMPHOCYTIC LEUKAEMIA
     Dosage: GIVEN OVER 15-30 MINUTES ON DAY 1
     Route: 042
  6. VINCRISTINE [Suspect]
     Indication: ACUTE LYMPHOCYTIC LEUKAEMIA
     Dosage: 1.5 MG/M2/DOSE, MAX. 2 MG, BY PUSH ON DAYS 1, 8, 15 AND 22
     Route: 042
  7. VANCOMYCIN [Concomitant]
     Indication: PROPHYLAXIS
     Route: 042
  8. ASPARAGINASE [Suspect]
     Indication: ACUTE LYMPHOCYTIC LEUKAEMIA
     Dosage: 2500 UNITS/M2/DOSE AS 4 WEEKLY DOSES
     Route: 030
  9. POSACONAZOLE [Concomitant]
     Indication: PROPHYLAXIS
     Route: 065
  10. VORICONAZOLE [Concomitant]
     Indication: PROPHYLAXIS
     Route: 065
  11. BORTEZOMIB [Suspect]
     Indication: ACUTE LYMPHOCYTIC LEUKAEMIA
     Dosage: 1.3 MG/SQ.M/DOSE ON DAYS 1, 4, 8 AND 11 COMBINED WITH VXLD
     Route: 042
  12. LEVOFLOXACIN [Concomitant]
     Indication: PROPHYLAXIS
     Route: 065

REACTIONS (32)
  - ASPARTATE AMINOTRANSFERASE ABNORMAL [None]
  - PNEUMONITIS [None]
  - LOWER GASTROINTESTINAL HAEMORRHAGE [None]
  - HYPOKALAEMIA [None]
  - EXTERNAL EAR PAIN [None]
  - HYPONATRAEMIA [None]
  - HYPOFIBRINOGENAEMIA [None]
  - COAGULOPATHY [None]
  - HYPERKALAEMIA [None]
  - PLEURAL EFFUSION [None]
  - GAMMA-GLUTAMYLTRANSFERASE ABNORMAL [None]
  - HYPERTENSION [None]
  - DEHYDRATION [None]
  - ALANINE AMINOTRANSFERASE ABNORMAL [None]
  - HYPERCALCAEMIA [None]
  - HYPERGLYCAEMIA [None]
  - COUGH [None]
  - PAIN IN EXTREMITY [None]
  - ABDOMINAL PAIN [None]
  - HYPOTENSION [None]
  - DIARRHOEA [None]
  - HYPOALBUMINAEMIA [None]
  - HICCUPS [None]
  - HAEMATOTOXICITY [None]
  - DECREASED APPETITE [None]
  - HYPOPHOSPHATAEMIA [None]
  - HYPOGLYCAEMIA [None]
  - THROMBOSIS [None]
  - BLOOD BILIRUBIN ABNORMAL [None]
  - HYPOCALCAEMIA [None]
  - INFECTION [None]
  - HYPOXIA [None]
